FAERS Safety Report 18946553 (Version 1)
Quarter: 2021Q1

REPORT INFORMATION
  Report Type: Report from Study
  Country: CN (occurrence: CN)
  Receive Date: 20210226
  Receipt Date: 20210226
  Transmission Date: 20210420
  Serious: Yes (Life-Threatening, Hospitalization)
  Sender: FDA-Public Use
  Company Number: CN-ASTRAZENECA-2021A081443

PATIENT
  Age: 55 Year
  Sex: Female

DRUGS (1)
  1. OSIMERTINIB. [Suspect]
     Active Substance: OSIMERTINIB
     Indication: LUNG NEOPLASM MALIGNANT
     Route: 048
     Dates: start: 20191013

REACTIONS (10)
  - Renal failure [Unknown]
  - Nausea [Unknown]
  - Cardiac arrest [Unknown]
  - Vomiting [Unknown]
  - Pyrexia [Unknown]
  - Cardiac failure [Unknown]
  - Anaemia [Unknown]
  - Lymphopenia [Unknown]
  - Respiratory arrest [Unknown]
  - Hypertension [Unknown]
